FAERS Safety Report 7293491-2 (Version None)
Quarter: 2011Q1

REPORT INFORMATION
  Report Type: 
  Country: None (occurrence: None)
  Receive Date: 20110215
  Receipt Date: 20110211
  Transmission Date: 20110831
  Serious: Yes (Other)
  Sender: FDA-Public Use
  Company Number: NO-PFIZER INC-2011030795

PATIENT
  Age: 46 Year
  Sex: Male

DRUGS (2)
  1. GLEEVEC [Concomitant]
     Indication: SYSTEMIC MASTOCYTOSIS
  2. NEURONTIN [Suspect]
     Indication: SYSTEMIC MASTOCYTOSIS
     Dosage: 600 MG, 3X/DAY

REACTIONS (4)
  - BONE EROSION [None]
  - TOOTH FRACTURE [None]
  - OSTEOMYELITIS [None]
  - PAIN [None]
